FAERS Safety Report 18102935 (Version 2)
Quarter: 2020Q4

REPORT INFORMATION
  Report Type: Report from Study
  Country: US (occurrence: US)
  Receive Date: 20200803
  Receipt Date: 20201103
  Transmission Date: 20210113
  Serious: Yes (Hospitalization, Other)
  Sender: FDA-Public Use
  Company Number: US-BEH-2020112839

PATIENT
  Age: 66 Year
  Sex: Female
  Weight: 90.7 kg

DRUGS (3)
  1. BERINERT [Suspect]
     Active Substance: HUMAN C1-ESTERASE INHIBITOR
     Indication: HEREDITARY ANGIOEDEMA
     Dosage: 3000 2 WEEKLY
     Route: 058
     Dates: start: 20181015
  2. BERINERT [Suspect]
     Active Substance: HUMAN C1-ESTERASE INHIBITOR
     Dosage: 6000 UNITS EVERY 3 DAYS
     Route: 058
     Dates: start: 20190114
  3. BERINERT [Suspect]
     Active Substance: HUMAN C1-ESTERASE INHIBITOR
     Indication: PROPHYLAXIS
     Dosage: 6000 UNITS EVERY 3 DAYS
     Route: 058
     Dates: start: 201811

REACTIONS (9)
  - Hereditary angioedema [Unknown]
  - Hereditary angioedema [Recovered/Resolved]
  - Tooth loss [Unknown]
  - Hereditary angioedema [Recovered/Resolved]
  - C1 esterase inhibitor decreased [Unknown]
  - Oral pain [Unknown]
  - Diarrhoea [Unknown]
  - Malaise [Unknown]
  - Animal bite [Unknown]

NARRATIVE: CASE EVENT DATE: 201910
